FAERS Safety Report 17483042 (Version 1)
Quarter: 2020Q1

REPORT INFORMATION
  Report Type: Spontaneous
  Country: US (occurrence: US)
  Receive Date: 20200228
  Receipt Date: 20200228
  Transmission Date: 20200409
  Serious: No
  Sender: FDA-Public Use
  Company Number: None

PATIENT
  Age: 73 Year
  Sex: Male
  Weight: 123.75 kg

DRUGS (4)
  1. VITAMINS [Concomitant]
     Active Substance: VITAMINS
  2. NOVOLIN 70/30 [Suspect]
     Active Substance: INSULIN HUMAN
     Indication: DIABETES MELLITUS
     Dosage: ?          QUANTITY:40 INJECTION(S);?
     Route: 058
  3. MELOXICAM. [Concomitant]
     Active Substance: MELOXICAM
  4. FUROSEMIDE. [Concomitant]
     Active Substance: FUROSEMIDE

REACTIONS (4)
  - Product substitution [None]
  - Hypersomnia [None]
  - Product quality issue [None]
  - Joint swelling [None]

NARRATIVE: CASE EVENT DATE: 20200201
